FAERS Safety Report 10600109 (Version 1)
Quarter: 2014Q4

REPORT INFORMATION
  Report Type: Spontaneous
  Country: US (occurrence: US)
  Receive Date: 20141122
  Receipt Date: 20141122
  Transmission Date: 20150529
  Serious: No
  Sender: FDA-Public Use
  Company Number: US-SA-2014SA130574

PATIENT
  Age: 79 Year
  Sex: Female

DRUGS (15)
  1. HECTOROL [Suspect]
     Active Substance: DOXERCALCIFEROL
     Route: 065
  2. ALLOPURINOL. [Concomitant]
     Active Substance: ALLOPURINOL
  3. ASPIRIN. [Concomitant]
     Active Substance: ASPIRIN
  4. RENVELA [Suspect]
     Active Substance: SEVELAMER CARBONATE
     Indication: HYPERPHOSPHATAEMIA
     Route: 048
     Dates: start: 201406, end: 201409
  5. AMITRIPTYLINE [Concomitant]
     Active Substance: AMITRIPTYLINE
  6. POTASSIUM [Concomitant]
     Active Substance: POTASSIUM
  7. BIOTIN [Concomitant]
     Active Substance: BIOTIN
  8. GLIPIZIDE. [Concomitant]
     Active Substance: GLIPIZIDE
  9. LOVASTATIN. [Concomitant]
     Active Substance: LOVASTATIN
  10. POTASSIUM CHLORIDE. [Concomitant]
     Active Substance: POTASSIUM CHLORIDE
  11. CALCITROL [Concomitant]
     Active Substance: CALCITRIOL
     Dosage: MONDAY, WEDNESDAY, FRIDAY
  12. VITAMIN D [Concomitant]
     Active Substance: CHOLECALCIFEROL
  13. HYDROCODONE [Concomitant]
     Active Substance: HYDROCODONE
  14. BUMETANIDE. [Concomitant]
     Active Substance: BUMETANIDE
     Dosage: 2 IN THE MORNING AND 1 IN THE EVENING
  15. GABAPENTIN. [Concomitant]
     Active Substance: GABAPENTIN

REACTIONS (1)
  - Dysphagia [Recovered/Resolved]
